FAERS Safety Report 7918416-5 (Version None)
Quarter: 2011Q4

REPORT INFORMATION
  Report Type: 
  Country: None (occurrence: None)
  Receive Date: 20111116
  Receipt Date: 20111110
  Transmission Date: 20120403
  Serious: Yes (Hospitalization, Other)
  Sender: FDA-Public Use
  Company Number: JP-CEPHALON-2011004819

PATIENT
  Sex: Male
  Weight: 57 kg

DRUGS (6)
  1. AMLODIPINE BESYLATE [Concomitant]
  2. TEMISARTAN [Concomitant]
  3. FLUCONAZOLE [Concomitant]
  4. BENDAMUSTINE HCL [Suspect]
     Indication: MANTLE CELL LYMPHOMA
     Route: 042
     Dates: start: 20110209
  5. TAMSULOSIN HYDROCHLORIDE [Concomitant]
     Dates: end: 20110305
  6. CLOPIDOGREL BISULFATE [Concomitant]
     Dates: start: 20110302

REACTIONS (9)
  - MALAISE [None]
  - LYMPHOCYTE COUNT DECREASED [None]
  - WHITE BLOOD CELL COUNT DECREASED [None]
  - INSOMNIA [None]
  - NEUTROPHIL COUNT DECREASED [None]
  - ABDOMINAL DISCOMFORT [None]
  - BLOOD LACTATE DEHYDROGENASE INCREASED [None]
  - HYPOGAMMAGLOBULINAEMIA [None]
  - C-REACTIVE PROTEIN INCREASED [None]
